FAERS Safety Report 5661721-6 (Version None)
Quarter: 2008Q1

REPORT INFORMATION
  Report Type: 
  Country: None (occurrence: None)
  Receive Date: 20080312
  Receipt Date: 20080306
  Transmission Date: 20080703
  Serious: Yes (Hospitalization)
  Sender: FDA-Public Use
  Company Number: B0511029A

PATIENT
  Age: 39 Year
  Sex: Female

DRUGS (2)
  1. LAPATINIB [Suspect]
  2. CAPECITABINE [Suspect]

REACTIONS (1)
  - DEHYDRATION [None]
